FAERS Safety Report 7711736-9 (Version None)
Quarter: 2011Q3

REPORT INFORMATION
  Report Type: 
  Country: None (occurrence: None)
  Receive Date: 20110826
  Receipt Date: 20110811
  Transmission Date: 20111222
  Serious: Yes (Hospitalization)
  Sender: FDA-Public Use
  Company Number: SE-UCBSA-034254

PATIENT
  Sex: Female
  Weight: 35 kg

DRUGS (4)
  1. VIMPAT [Suspect]
     Indication: EPILEPSY
     Dosage: 50 MG TABLET.SOLUTION FOR INFUSION 10 MG/ML DAILY DOSES OF 200 AND 300 MG. 150 MG TWICE DAILY.
     Route: 048
     Dates: start: 20110517, end: 20110101
  2. CORTISONE ACETATE [Concomitant]
  3. VIMPAT [Suspect]
     Indication: CONVULSION
     Dosage: 50 MG TABLET.SOLUTION FOR INFUSION 10 MG/ML DAILY DOSES OF 200 AND 300 MG. 150 MG TWICE DAILY.
     Route: 048
     Dates: start: 20110517, end: 20110101
  4. POLYGAM S/D [Concomitant]

REACTIONS (1)
  - ELECTROENCEPHALOGRAM ABNORMAL [None]
